FAERS Safety Report 10469582 (Version 1)
Quarter: 2014Q3

REPORT INFORMATION
  Report Type: Spontaneous
  Country: US (occurrence: None)
  Receive Date: 20140922
  Receipt Date: 20140922
  Transmission Date: 20150326
  Serious: Yes (Hospitalization)
  Sender: FDA-Public Use
  Company Number: None

PATIENT
  Age: 58 Year
  Sex: Male
  Weight: 99 kg

DRUGS (12)
  1. OMEGA 3 AND OMEGA 6 FISH OIL [Concomitant]
  2. PROCHLORPERAZINE MALEATE. [Concomitant]
     Active Substance: PROCHLORPERAZINE MALEATE
  3. ALIMTA [Suspect]
     Active Substance: PEMETREXED DISODIUM
  4. DEXAMETHESONE [Concomitant]
  5. CLARITIN [Concomitant]
     Active Substance: LORATADINE
  6. FENOFIBRATE. [Concomitant]
     Active Substance: FENOFIBRATE
  7. MAGNESIUM [Concomitant]
     Active Substance: MAGNESIUM
  8. FOLIC ACID. [Concomitant]
     Active Substance: FOLIC ACID
  9. VITAMIN D3 [Suspect]
     Active Substance: CHOLECALCIFEROL
  10. ASA [Concomitant]
     Active Substance: ASPIRIN
  11. AMLODIPINE BESYLAATE [Concomitant]
  12. CRESTOR [Concomitant]
     Active Substance: ROSUVASTATIN CALCIUM

REACTIONS (15)
  - Rhabdomyolysis [None]
  - Hypomagnesaemia [None]
  - Alanine aminotransferase increased [None]
  - Aspartate aminotransferase increased [None]
  - Febrile neutropenia [None]
  - Hyporesponsive to stimuli [None]
  - Sepsis [None]
  - Blood potassium decreased [None]
  - Prothrombin time prolonged [None]
  - Bacterial infection [None]
  - Renal failure acute [None]
  - Dehydration [None]
  - Pancytopenia [None]
  - Blood sodium decreased [None]
  - Blood bilirubin increased [None]

NARRATIVE: CASE EVENT DATE: 20140909
